FAERS Safety Report 11647236 (Version 1)
Quarter: 2015Q4

REPORT INFORMATION
  Report Type: Spontaneous
  Country: CN (occurrence: CN)
  Receive Date: 20151021
  Receipt Date: 20151021
  Transmission Date: 20160304
  Serious: Yes (Hospitalization)
  Sender: FDA-Public Use
  Company Number: CN-ROCHE-1648390

PATIENT
  Age: 65 Year
  Sex: Male

DRUGS (3)
  1. SULPERAZONE [Suspect]
     Active Substance: CEFOPERAZONE SODIUM\SULBACTAM SODIUM
     Indication: LUNG INFECTION
     Route: 041
     Dates: start: 20150318, end: 20150324
  2. ETIMICIN SULFATE [Suspect]
     Active Substance: ETIMICIN SULFATE
     Indication: LUNG INFECTION
     Route: 041
     Dates: start: 20150318, end: 20150324
  3. ROCEPHIN [Suspect]
     Active Substance: CEFTRIAXONE SODIUM
     Indication: LUNG INFECTION
     Route: 041
     Dates: start: 20150308, end: 20150317

REACTIONS (3)
  - Fungal infection [Recovering/Resolving]
  - Diarrhoea [Recovering/Resolving]
  - Dysbacteriosis [None]

NARRATIVE: CASE EVENT DATE: 20150320
